FAERS Safety Report 8417531-X (Version None)
Quarter: 2012Q2

REPORT INFORMATION
  Report Type: 
  Country: None (occurrence: None)
  Receive Date: 20120606
  Receipt Date: 20120604
  Transmission Date: 20120825
  Serious: Yes (Other)
  Sender: FDA-Public Use
  Company Number: GB-MYLANLABS-2012S1011136

PATIENT
  Age: 83 Year
  Sex: Female

DRUGS (4)
  1. FLUCLOXACILLIN [Suspect]
     Indication: WOUND INFECTION
     Route: 042
  2. METFORMIN HCL [Suspect]
     Route: 065
  3. IRBESARTAN [Suspect]
     Route: 065
  4. ACETAMINOPHEN [Suspect]
     Indication: WOUND INFECTION
     Route: 065

REACTIONS (3)
  - ACID BASE BALANCE ABNORMAL [None]
  - METABOLIC ACIDOSIS [None]
  - HYPERKALAEMIA [None]
